FAERS Safety Report 7621595-0 (Version None)
Quarter: 2011Q3

REPORT INFORMATION
  Report Type: 
  Country: None (occurrence: None)
  Receive Date: 20110719
  Receipt Date: 20110319
  Transmission Date: 20111222
  Serious: Yes (Other)
  Sender: FDA-Public Use
  Company Number: PHHY2011DE47398

PATIENT
  Sex: Female

DRUGS (2)
  1. GLEEVEC [Suspect]
     Indication: CHRONIC MYELOID LEUKAEMIA
     Route: 048
     Dates: start: 20030101
  2. MULTAQ [Suspect]
     Indication: CARDIAC DISORDER

REACTIONS (3)
  - CARDIAC DISORDER [None]
  - WEIGHT DECREASED [None]
  - NAUSEA [None]
